FAERS Safety Report 5562044-6 (Version None)
Quarter: 2007Q4

REPORT INFORMATION
  Report Type: 
  Country: None (occurrence: None)
  Receive Date: 20071215
  Receipt Date: 20071003
  Transmission Date: 20080405
  Serious: No
  Sender: FDA-Public Use
  Company Number: US-AMGEN-KDL246378

PATIENT
  Sex: Female

DRUGS (3)
  1. ENBREL [Suspect]
     Indication: SYSTEMIC LUPUS ERYTHEMATOSUS
     Route: 058
     Dates: start: 20070920
  2. ENBREL [Suspect]
     Indication: DERMATOMYOSITIS
  3. PLAQUENIL [Concomitant]
     Route: 048
     Dates: start: 20061101

REACTIONS (4)
  - ASTHENIA [None]
  - PAIN [None]
  - PAIN IN EXTREMITY [None]
  - SOMNOLENCE [None]
